FAERS Safety Report 7527740-X (Version None)
Quarter: 2011Q2

REPORT INFORMATION
  Report Type: 
  Country: None (occurrence: None)
  Receive Date: 20110527
  Receipt Date: 20110516
  Transmission Date: 20111010
  Serious: Yes (Hospitalization)
  Sender: FDA-Public Use
  Company Number: DSM-2011-00304

PATIENT
  Age: 56 Year
  Sex: Female

DRUGS (1)
  1. OLMESARTAN MEDOXOMIL [Suspect]
     Indication: HYPERTENSION
     Dosage: 10 MG,ORAL
     Route: 048
     Dates: start: 20110203, end: 20110223

REACTIONS (2)
  - THROMBOCYTOPENIA [None]
  - TRANSAMINASES INCREASED [None]
